FAERS Safety Report 8069213-4 (Version None)
Quarter: 2012Q1

REPORT INFORMATION
  Report Type: 
  Country: None (occurrence: None)
  Receive Date: 20120125
  Receipt Date: 20120116
  Transmission Date: 20120608
  Serious: Yes (Other)
  Sender: FDA-Public Use
  Company Number: CL-BRISTOL-MYERS SQUIBB COMPANY-16351652

PATIENT
  Age: 33 Year
  Sex: Female

DRUGS (2)
  1. GEMFIBROZIL [Concomitant]
  2. IXEMPRA KIT [Suspect]
     Indication: BREAST CANCER
     Dates: start: 20110201

REACTIONS (3)
  - PAIN [None]
  - PANCREATITIS [None]
  - BONE PAIN [None]
